FAERS Safety Report 9623668 (Version 4)
Quarter: 2014Q1

REPORT INFORMATION
  Report Type: Report from Study
  Country: TR (occurrence: TR)
  Receive Date: 20131015
  Receipt Date: 20140310
  Transmission Date: 20141002
  Serious: Yes (Other)
  Sender: FDA-Public Use
  Company Number: TR-ABBVIE-13P-161-1144421-00

PATIENT
  Age: 43 Year
  Sex: Female
  Weight: 65 kg

DRUGS (6)
  1. HUMIRA [Suspect]
     Indication: RHEUMATOID ARTHRITIS
     Route: 058
     Dates: start: 2010, end: 201309
  2. ARAVA [Concomitant]
     Indication: RHEUMATOID ARTHRITIS
     Dosage: 1 EVERY 2 DAYS
     Route: 048
  3. PLAQUENIL [Concomitant]
     Indication: RHEUMATOID ARTHRITIS
     Dosage: 2X1
     Route: 048
  4. PREDNOL [Concomitant]
     Indication: RHEUMATOID ARTHRITIS
     Route: 048
  5. PREDNOL [Concomitant]
     Route: 048
  6. PREDNOL [Concomitant]
     Route: 048

REACTIONS (1)
  - Systemic lupus erythematosus [Recovered/Resolved]
